FAERS Safety Report 9614504 (Version 2)
Quarter: 2013Q4

REPORT INFORMATION
  Report Type: Spontaneous
  Country: RU (occurrence: RU)
  Receive Date: 20131011
  Receipt Date: 20131011
  Transmission Date: 20140711
  Serious: Yes (Other)
  Sender: FDA-Public Use
  Company Number: RU-JNJFOC-20130718390

PATIENT
  Age: 57 Year
  Sex: Female

DRUGS (5)
  1. REMICADE [Suspect]
     Indication: RHEUMATOID ARTHRITIS
     Route: 042
     Dates: start: 201305, end: 201305
  2. REMICADE [Suspect]
     Indication: RHEUMATOID ARTHRITIS
     Route: 042
     Dates: start: 201209
  3. METHOTREXATE [Concomitant]
     Route: 065
     Dates: start: 2000
  4. MELOXICAM [Concomitant]
     Dosage: 7.5 TO 15 MG
     Route: 065
  5. NISE [Concomitant]
     Route: 065

REACTIONS (6)
  - Hyperaemia [Recovered/Resolved]
  - Hyperthermia [Recovered/Resolved]
  - Dermatitis allergic [Recovered/Resolved]
  - Erythema [Recovered/Resolved]
  - Drug hypersensitivity [Unknown]
  - Skin swelling [Unknown]
